FAERS Safety Report 9056870 (Version 1)
Quarter: 2013Q1

REPORT INFORMATION
  Report Type: Report from Study
  Country: JP (occurrence: JP)
  Receive Date: 20130201
  Receipt Date: 20130201
  Transmission Date: 20140127
  Serious: Yes (Other)
  Sender: FDA-Public Use
  Company Number: JP-GLAXOSMITHKLINE-B0860801A

PATIENT
  Age: 75 None
  Sex: Female

DRUGS (6)
  1. TYKERB [Suspect]
     Indication: BREAST CANCER
     Route: 048
     Dates: start: 20111123, end: 20120306
  2. TYKERB [Suspect]
     Indication: BREAST CANCER
     Route: 048
     Dates: start: 20120328, end: 20120417
  3. XELODA [Concomitant]
     Route: 048
     Dates: start: 20111123
  4. ZOMETA [Concomitant]
     Route: 042
     Dates: start: 20120104
  5. PYDOXAL [Concomitant]
     Indication: PROPHYLAXIS
     Route: 048
     Dates: start: 20111123
  6. OXYCONTIN [Concomitant]
     Indication: CANCER PAIN
     Route: 048
     Dates: start: 20111128

REACTIONS (3)
  - Cardiac failure [Unknown]
  - Diarrhoea [Recovering/Resolving]
  - Rash [Recovering/Resolving]
